FAERS Safety Report 17480347 (Version 1)
Quarter: 2020Q1

REPORT INFORMATION
  Report Type: Spontaneous
  Country: US (occurrence: US)
  Receive Date: 20200228
  Receipt Date: 20200228
  Transmission Date: 20200409
  Serious: No
  Sender: FDA-Public Use
  Company Number: US-JNJFOC-20200214201

PATIENT
  Sex: Female
  Weight: 67.19 kg

DRUGS (1)
  1. WOMENS ROGAINE UNSCENTED [Suspect]
     Active Substance: MINOXIDIL
     Indication: ALOPECIA
     Dosage: DOSE: HALF A CAPFUL AND FREQUENCY: ONCE A DAY?THE PRODUCT WAS LAST ADMINISTERED ON 06/FEB/2020.
     Route: 061

REACTIONS (3)
  - Hair texture abnormal [Recovered/Resolved]
  - Alopecia [Not Recovered/Not Resolved]
  - Drug ineffective [Unknown]
